FAERS Safety Report 18504873 (Version 2)
Quarter: 2020Q4

REPORT INFORMATION
  Report Type: Spontaneous
  Country: BR (occurrence: BR)
  Receive Date: 20201115
  Receipt Date: 20201229
  Transmission Date: 20210114
  Serious: No
  Sender: FDA-Public Use
  Company Number: BR-009507513-2011BRA008307

PATIENT
  Age: 23 Year
  Sex: Female
  Weight: 60 kg

DRUGS (2)
  1. NUVARING [Suspect]
     Active Substance: ETHINYL ESTRADIOL\ETONOGESTREL
     Indication: CONTRACEPTION
     Dosage: 1 RING, USING FOR 3 WEEKS AND BREAKING FOR 7 DAYS
     Route: 067
  2. NUVARING [Suspect]
     Active Substance: ETHINYL ESTRADIOL\ETONOGESTREL
     Indication: CONTRACEPTION
     Dosage: 1 RING, USING FOR 3 WEEKS AND BREAKING FOR 7 DAYS
     Route: 067
     Dates: start: 20201108, end: 2020

REACTIONS (3)
  - Pain [Recovered/Resolved]
  - Device breakage [Unknown]
  - Discomfort [Unknown]

NARRATIVE: CASE EVENT DATE: 20201110
